FAERS Safety Report 8428999-7 (Version None)
Quarter: 2012Q2

REPORT INFORMATION
  Report Type: 
  Country: None (occurrence: None)
  Receive Date: 20120612
  Receipt Date: 20120420
  Transmission Date: 20120825
  Serious: No
  Sender: FDA-Public Use
  Company Number: US-COVIDIEN/TYCO HEALTHCARE/MALLINCKRODT-T201201543

PATIENT

DRUGS (2)
  1. ULTRATAG [Suspect]
     Indication: RADIOISOTOPE SCAN
     Dosage: UNK
  2. TECHNETIUM TC 99M GENERATOR [Concomitant]
     Indication: RADIOISOTOPE SCAN
     Dosage: UNK

REACTIONS (1)
  - DRUG INEFFECTIVE [None]
